FAERS Safety Report 25958079 (Version 1)
Quarter: 2025Q4

REPORT INFORMATION
  Report Type: Spontaneous
  Country: EU (occurrence: EU)
  Receive Date: 20251024
  Receipt Date: 20251024
  Transmission Date: 20260117
  Serious: Yes (Death, Hospitalization)
  Sender: EISAI
  Company Number: None

PATIENT
  Age: 64 Year
  Sex: Female
  Weight: 47 kg

DRUGS (2)
  1. LENVIMA [Suspect]
     Active Substance: LENVATINIB
     Indication: Hepatocellular carcinoma
     Route: 048
     Dates: start: 20190913, end: 20240130
  2. LENVIMA [Suspect]
     Active Substance: LENVATINIB
     Route: 048
     Dates: start: 20250523, end: 20251001

REACTIONS (3)
  - Cardiogenic shock [Fatal]
  - Acute kidney injury [Not Recovered/Not Resolved]
  - Decompensated hypothyroidism [Not Recovered/Not Resolved]

NARRATIVE: CASE EVENT DATE: 20250930
